FAERS Safety Report 10456954 (Version 2)
Quarter: 2015Q3

REPORT INFORMATION
  Report Type: Spontaneous
  Country: US (occurrence: US)
  Receive Date: 20140916
  Receipt Date: 20150722
  Transmission Date: 20151125
  Serious: Yes (Death, Hospitalization, Other)
  Sender: FDA-Public Use
  Company Number: US-TEVA-508023USA

PATIENT
  Age: 35 Year
  Sex: Female

DRUGS (1)
  1. CITALOPRAM [Suspect]
     Active Substance: CITALOPRAM HYDROBROMIDE
     Indication: INTENTIONAL OVERDOSE
     Route: 065

REACTIONS (7)
  - Cardiac arrest [Fatal]
  - Liver injury [Fatal]
  - Torsade de pointes [Fatal]
  - Seizure [Fatal]
  - Intentional overdose [Fatal]
  - Serotonin syndrome [Fatal]
  - Renal injury [Fatal]
